FAERS Safety Report 8770685 (Version 1)
Quarter: 2012Q4

REPORT INFORMATION
  Report Type: 
  Country: GB (occurrence: GB)
  Receive Date: 20120906
  Receipt Date: 20120906
  Transmission Date: 20130627
  Serious: Yes (Other)
  Sender: FDA-Public Use
  Company Number: GB-MYLANLABS-2012S1017461

PATIENT
  Age: 70 Year
  Sex: Female

DRUGS (3)
  1. ALENDRONIC ACID [Suspect]
     Indication: OSTEOPOROSIS
     Dosage: weekly
     Route: 048
  2. CALCICHEW [Concomitant]
     Route: 065
  3. NIFEDIPINE [Concomitant]
     Route: 065

REACTIONS (2)
  - Bronchiectasis [Recovered/Resolved]
  - Foreign body aspiration [Recovered/Resolved]
